FAERS Safety Report 4623839-6 (Version None)
Quarter: 2005Q1

REPORT INFORMATION
  Report Type: 
  Country: None (occurrence: None)
  Receive Date: 20050331
  Receipt Date: 20050321
  Transmission Date: 20050727
  Serious: Yes (Other)
  Sender: FDA-Public Use
  Company Number: PHBS2005DK04177

PATIENT
  Age: 51 Year
  Sex: Male

DRUGS (1)
  1. VOLTAREN [Suspect]
     Indication: BACK DISORDER
     Dosage: 3 ML, ONCE/SINGLE
     Route: 030
     Dates: start: 20041221, end: 20041221

REACTIONS (4)
  - FIBROSIS [None]
  - GAIT DISTURBANCE [None]
  - INJECTION SITE PAIN [None]
  - SLEEP DISORDER [None]
